FAERS Safety Report 6208288-1 (Version None)
Quarter: 2009Q2

REPORT INFORMATION
  Report Type: 
  Country: None (occurrence: None)
  Receive Date: 20090529
  Receipt Date: 20090526
  Transmission Date: 20091009
  Serious: Yes (Other)
  Sender: FDA-Public Use
  Company Number: CN-JNJFOC-20090506230

PATIENT

DRUGS (1)
  1. SPORANOX [Suspect]
     Indication: PULMONARY MYCOSIS
     Route: 065

REACTIONS (1)
  - SEPTIC SHOCK [None]
